FAERS Safety Report 10007670 (Version 2)
Quarter: 2015Q3

REPORT INFORMATION
  Report Type: Spontaneous
  Country: US (occurrence: US)
  Receive Date: 20140313
  Receipt Date: 20150813
  Transmission Date: 20151125
  Serious: No
  Sender: FDA-Public Use
  Company Number: US-GILEAD-2012-0064886

PATIENT
  Age: 54 Year
  Sex: Female

DRUGS (12)
  1. HYDROCHLOROTHIAZIDE. [Concomitant]
     Active Substance: HYDROCHLOROTHIAZIDE
  2. METOPROLOL SUCCINATE. [Concomitant]
     Active Substance: METOPROLOL SUCCINATE
  3. FISH OIL [Concomitant]
     Active Substance: FISH OIL
  4. NIFEDIPINE. [Concomitant]
     Active Substance: NIFEDIPINE
  5. PREDNISONE. [Concomitant]
     Active Substance: PREDNISONE
  6. DIOVAN [Concomitant]
     Active Substance: VALSARTAN
  7. LETAIRIS [Suspect]
     Active Substance: AMBRISENTAN
     Indication: PRODUCT USED FOR UNKNOWN INDICATION
     Dosage: 5 MG, QD
     Route: 048
     Dates: start: 20120302
  8. COLESTIPOL [Concomitant]
     Active Substance: COLESTIPOL
  9. CALCIUM [Concomitant]
     Active Substance: CALCIUM
  10. LAMICTAL [Concomitant]
     Active Substance: LAMOTRIGINE
  11. NEXIUM [Concomitant]
     Active Substance: ESOMEPRAZOLE MAGNESIUM
  12. RANITIDINE [Concomitant]
     Active Substance: RANITIDINE\RANITIDINE HYDROCHLORIDE

REACTIONS (1)
  - Anaemia [Unknown]

NARRATIVE: CASE EVENT DATE: 201210
